FAERS Safety Report 4974595-3 (Version None)
Quarter: 2006Q1

REPORT INFORMATION
  Report Type: 
  Country: None (occurrence: None)
  Receive Date: 20060215
  Receipt Date: 20051003
  Transmission Date: 20060701
  Serious: Yes (Other)
  Sender: FDA-Public Use
  Company Number: PROG00205003247

PATIENT
  Age: 58 Year
  Sex: Female

DRUGS (4)
  1. PROGESTAN (PROGESTERONE) [Suspect]
     Indication: HORMONE REPLACEMENT THERAPY
     Dosage: DAILY VAGINAL
     Route: 067
  2. LIVIAL [Suspect]
     Indication: MAMMOGRAM ABNORMAL
     Dosage: DAILY
  3. ESTRADIOL ANHYDRE (ESTRADIOL ANHYDRE) [Suspect]
     Indication: HORMONE REPLACEMENT THERAPY
     Dosage: DAILY
  4. NOMEGESTROL (NOMEGESTROL) [Suspect]
     Indication: HORMONE REPLACEMENT THERAPY
     Dosage: DAILY

REACTIONS (1)
  - BREAST CANCER [None]
